FAERS Safety Report 13680698 (Version 2)
Quarter: 2017Q3

REPORT INFORMATION
  Report Type: Spontaneous
  Country: US (occurrence: US)
  Receive Date: 20170623
  Receipt Date: 20170930
  Transmission Date: 20171127
  Serious: No
  Sender: FDA-Public Use
  Company Number: US-LEO PHARMA-303408

PATIENT
  Age: 52 Year
  Sex: Male
  Weight: 124.85 kg

DRUGS (17)
  1. PICATO [Suspect]
     Active Substance: INGENOL MEBUTATE
     Indication: ACTINIC KERATOSIS
     Route: 061
     Dates: start: 20170615, end: 20170617
  2. PROTONIX [Concomitant]
     Active Substance: PANTOPRAZOLE SODIUM
     Indication: GASTROOESOPHAGEAL REFLUX DISEASE
  3. NAPROXEN. [Concomitant]
     Active Substance: NAPROXEN
     Indication: FIBROMYALGIA
  4. MG GLUCONATE [Concomitant]
     Indication: ELECTROLYTE DEPLETION
  5. KCL MICRO [Concomitant]
     Indication: ELECTROLYTE DEPLETION
  6. ADDERALL XR [Concomitant]
     Active Substance: AMPHETAMINE ASPARTATE\AMPHETAMINE SULFATE\DEXTROAMPHETAMINE SACCHARATE\DEXTROAMPHETAMINE SULFATE
     Indication: ATTENTION DEFICIT/HYPERACTIVITY DISORDER
  7. HYDROCHLOROTHIAZIDE. [Concomitant]
     Active Substance: HYDROCHLOROTHIAZIDE
     Indication: PRODUCT USED FOR UNKNOWN INDICATION
  8. METFORMIN [Concomitant]
     Active Substance: METFORMIN HYDROCHLORIDE
     Indication: DIABETES MELLITUS
  9. NAPROXEN. [Concomitant]
     Active Substance: NAPROXEN
     Indication: CHONDRITIS
  10. TRAZODONE [Concomitant]
     Active Substance: TRAZODONE HYDROCHLORIDE
     Indication: INSOMNIA
  11. LISINOPRIL. [Concomitant]
     Active Substance: LISINOPRIL
     Indication: HYPERSENSITIVITY
  12. FERROUS SULFATE. [Concomitant]
     Active Substance: FERROUS SULFATE
     Indication: ANAEMIA
  13. B COMPLEX PLUS VITAMIN C [Concomitant]
     Indication: VITAMIN B COMPLEX DEFICIENCY
  14. LEVOTHYROXINE. [Concomitant]
     Active Substance: LEVOTHYROXINE
     Indication: THYROID HORMONES DECREASED
  15. B COMPLEX PLUS VITAMIN C [Concomitant]
     Indication: NERVE INJURY
  16. ADDERALL XR [Concomitant]
     Active Substance: AMPHETAMINE ASPARTATE\AMPHETAMINE SULFATE\DEXTROAMPHETAMINE SACCHARATE\DEXTROAMPHETAMINE SULFATE
     Indication: FATIGUE
  17. FLEXERIL [Concomitant]
     Active Substance: CYCLOBENZAPRINE HYDROCHLORIDE
     Indication: MUSCLE SPASMS

REACTIONS (8)
  - Application site discomfort [Recovered/Resolved]
  - Application site pain [Recovered/Resolved]
  - Application site induration [Recovered/Resolved]
  - Application site vesicles [Recovered/Resolved]
  - Application site exfoliation [Recovered/Resolved]
  - Application site erythema [Recovered/Resolved]
  - Application site pruritus [Recovered/Resolved]
  - Application site dryness [Recovered/Resolved]
